FAERS Safety Report 24182982 (Version 1)
Quarter: 2024Q3

REPORT INFORMATION
  Report Type: Other
  Country: CA (occurrence: CA)
  Receive Date: 20240807
  Receipt Date: 20240807
  Transmission Date: 20241016
  Serious: Yes (Other)
  Sender: APOTEX
  Company Number: CA-APOTEX-2024AP008976

PATIENT
  Age: 50 Year
  Sex: Male

DRUGS (2)
  1. ALBUTEROL [Suspect]
     Active Substance: ALBUTEROL
     Indication: Cough
     Dosage: UNK
     Route: 065
  2. SPIRIVA [Concomitant]
     Active Substance: TIOTROPIUM BROMIDE MONOHYDRATE
     Indication: Cough
     Dosage: UNK
     Route: 065

REACTIONS (11)
  - Dyspnoea [Unknown]
  - Dyspnoea exertional [Unknown]
  - Increased bronchial secretion [Unknown]
  - Product use in unapproved indication [Unknown]
  - Productive cough [Unknown]
  - Pulmonary congestion [Unknown]
  - Renal pain [Unknown]
  - Wheezing [Unknown]
  - Chest discomfort [Unknown]
  - Cough [Unknown]
  - Drug ineffective for unapproved indication [Unknown]
